FAERS Safety Report 9604772 (Version 1)
Quarter: 2013Q4

REPORT INFORMATION
  Report Type: Spontaneous
  Country: US (occurrence: US)
  Receive Date: 20131008
  Receipt Date: 20131008
  Transmission Date: 20140711
  Serious: No
  Sender: FDA-Public Use
  Company Number: US-PFIZER INC-2013285270

PATIENT
  Age: 6 Decade
  Sex: Female

DRUGS (3)
  1. LYRICA [Suspect]
     Dosage: 150
  2. LYRICA [Suspect]
     Dosage: 75, ONCE A DAY
  3. LEXAPRO [Concomitant]
     Dosage: UNK

REACTIONS (1)
  - Paraesthesia [Not Recovered/Not Resolved]
